FAERS Safety Report 5953211-8 (Version None)
Quarter: 2008Q4

REPORT INFORMATION
  Report Type: 
  Country: None (occurrence: None)
  Receive Date: 20081114
  Receipt Date: 20081103
  Transmission Date: 20090506
  Serious: Yes (Other)
  Sender: FDA-Public Use
  Company Number: PHEH2007US16230

PATIENT
  Sex: Female
  Weight: 77.098 kg

DRUGS (11)
  1. EXFORGE [Suspect]
     Indication: HYPERTENSION
     Dosage: 5/160MG, QD
     Dates: start: 20071008, end: 20081016
  2. EXFORGE [Suspect]
     Dosage: 10/160MG, QD
     Dates: start: 20071016, end: 20071226
  3. DIOVAN HCT [Suspect]
     Indication: HYPERTENSION
     Dosage: 80MG VAL. 12.5 HCT
     Dates: start: 20070314, end: 20071008
  4. MAGNESIUM CITRATE [Concomitant]
  5. HYZAAR [Concomitant]
     Dosage: 50/12.5 MG
  6. BEXTRA [Concomitant]
     Dosage: UNK
     Dates: start: 20041015
  7. DARVOCET-N 100 [Concomitant]
     Dosage: UNK
     Dates: start: 20041015
  8. ZITHROMAX [Concomitant]
     Dosage: UNK
     Dates: start: 20061214
  9. MEDROL [Concomitant]
     Dosage: UNK
     Dates: start: 20061214
  10. ZYRTEC-D 12 HOUR [Concomitant]
  11. TOPROL-XL [Concomitant]

REACTIONS (16)
  - ABDOMINAL PAIN [None]
  - BLOOD GLUCOSE INCREASED [None]
  - BLOOD PRESSURE INADEQUATELY CONTROLLED [None]
  - BLOOD PRESSURE INCREASED [None]
  - CARDIAC DISORDER [None]
  - CARDIAC STRESS TEST ABNORMAL [None]
  - CERVIX DISORDER [None]
  - COMPUTERISED TOMOGRAM ABNORMAL [None]
  - CONSTIPATION [None]
  - DEHYDRATION [None]
  - ELECTROCARDIOGRAM ABNORMAL [None]
  - FATIGUE [None]
  - NON-CARDIAC CHEST PAIN [None]
  - SUPRAVENTRICULAR TACHYCARDIA [None]
  - TINNITUS [None]
  - VENTRICULAR FIBRILLATION [None]
